FAERS Safety Report 22337473 (Version 1)
Quarter: 2023Q2

REPORT INFORMATION
  Report Type: Spontaneous
  Country: US (occurrence: None)
  Receive Date: 20230517
  Receipt Date: 20230517
  Transmission Date: 20230722
  Serious: Yes (Other)
  Sender: FDA-Public Use
  Company Number: None

PATIENT
  Sex: 0

DRUGS (1)
  1. OFLOXACIN OPHTHALMIC [Suspect]
     Active Substance: OFLOXACIN
     Indication: Ear infection
     Dates: start: 20230228, end: 20230301

REACTIONS (3)
  - Dizziness [None]
  - Palpitations [None]
  - Therapy interrupted [None]

NARRATIVE: CASE EVENT DATE: 20230228
